FAERS Safety Report 10727488 (Version 3)
Quarter: 2015Q3

REPORT INFORMATION
  Report Type: Spontaneous
  Country: JP (occurrence: JP)
  Receive Date: 20150121
  Receipt Date: 20150910
  Transmission Date: 20151125
  Serious: Yes (Death, Disabling, Other)
  Sender: FDA-Public Use
  Company Number: JP-SA-2015SA006353

PATIENT
  Age: 63 Year
  Sex: Male
  Weight: 60 kg

DRUGS (22)
  1. ELPLAT [Suspect]
     Active Substance: OXALIPLATIN
     Indication: PANCREATIC CARCINOMA
     Dosage: 85.2 MG/M2)
     Route: 041
     Dates: start: 20140613, end: 20140613
  2. ELPLAT [Suspect]
     Active Substance: OXALIPLATIN
     Indication: PANCREATIC CARCINOMA
     Dosage: 69.6MG/M2
     Route: 041
     Dates: start: 20140723, end: 20140723
  3. CAMPTO [Suspect]
     Active Substance: IRINOTECAN
     Indication: PANCREATIC CARCINOMA
     Dosage: 180.4 MG/M2
     Route: 041
     Dates: start: 20140613, end: 20140613
  4. CALCIUM LEVOFOLINATE [Concomitant]
     Active Substance: LEVOLEUCOVORIN CALCIUM
     Dates: start: 20140530, end: 20140723
  5. GEMCITABINE [Concomitant]
     Active Substance: GEMCITABINE\GEMCITABINE HYDROCHLORIDE
     Indication: PANCREATIC CARCINOMA
     Dates: start: 20140116, end: 20140501
  6. EMEND [Concomitant]
     Active Substance: APREPITANT
     Dates: start: 20140530, end: 20140725
  7. GEMCITABINE [Concomitant]
     Active Substance: GEMCITABINE\GEMCITABINE HYDROCHLORIDE
     Indication: PANCREATIC CARCINOMA
     Dates: start: 20130620, end: 20140108
  8. CRAVIT [Concomitant]
     Active Substance: LEVOFLOXACIN
     Dates: start: 20140608, end: 20140612
  9. BAYASPIRIN [Concomitant]
     Active Substance: ASPIRIN
     Dates: start: 20140705, end: 20140718
  10. ELPLAT [Suspect]
     Active Substance: OXALIPLATIN
     Indication: PANCREATIC CARCINOMA
     Dosage: 69.6 MG/M2
     Route: 041
     Dates: start: 20140702, end: 20140702
  11. ALOXI [Concomitant]
     Active Substance: PALONOSETRON HYDROCHLORIDE
     Dates: start: 20140530, end: 20140723
  12. LOXONIN [Concomitant]
     Active Substance: LOXOPROFEN SODIUM
     Dates: start: 20140509, end: 20140622
  13. CAMPTO [Suspect]
     Active Substance: IRINOTECAN
     Indication: PANCREATIC CARCINOMA
     Dosage: 145 MG/M2
     Route: 041
     Dates: start: 20140702, end: 20140702
  14. CAMPTO [Suspect]
     Active Substance: IRINOTECAN
     Indication: PANCREATIC CARCINOMA
     Dosage: 145 MG/M2
     Route: 041
     Dates: start: 20140723, end: 20140723
  15. 5-FU [Concomitant]
     Active Substance: FLUOROURACIL
     Route: 040
     Dates: start: 20140530, end: 20140723
  16. TARCEVA [Concomitant]
     Active Substance: ERLOTINIB HYDROCHLORIDE
     Indication: PANCREATIC CARCINOMA
     Dates: start: 20140319, end: 20140501
  17. DEXART [Concomitant]
     Active Substance: DEXAMETHASONE SODIUM PHOSPHATE
     Dates: start: 20140530, end: 20140723
  18. ELPLAT [Suspect]
     Active Substance: OXALIPLATIN
     Indication: PANCREATIC CARCINOMA
     Dosage: 85.2 MG/M2)
     Route: 041
     Dates: start: 20140530, end: 20140530
  19. CAMPTO [Suspect]
     Active Substance: IRINOTECAN
     Indication: PANCREATIC CARCINOMA
     Dosage: 180.4 MG/M2
     Route: 041
     Dates: start: 20140530, end: 20140530
  20. NEXIUM [Concomitant]
     Active Substance: ESOMEPRAZOLE MAGNESIUM
     Dates: start: 20140517, end: 20140714
  21. ZYPREXA [Concomitant]
     Active Substance: OLANZAPINE
     Dates: start: 20140603, end: 20140722
  22. DECADRON [Concomitant]
     Active Substance: DEXAMETHASONE
     Dates: start: 20140724, end: 20140726

REACTIONS (11)
  - Platelet count decreased [Not Recovered/Not Resolved]
  - Decreased appetite [Recovered/Resolved]
  - White blood cell count decreased [Unknown]
  - Embolic cerebral infarction [Fatal]
  - Trousseau^s syndrome [Recovering/Resolving]
  - Haemoglobin decreased [Recovered/Resolved]
  - Nausea [Recovered/Resolved]
  - Peripheral sensory neuropathy [Recovered/Resolved]
  - Pyrexia [Recovered/Resolved]
  - Neutrophil count decreased [Recovered/Resolved]
  - Fatigue [Recovered/Resolved]
